FAERS Safety Report 6559122-1 (Version None)
Quarter: 2010Q1

REPORT INFORMATION
  Report Type: 
  Country: None (occurrence: None)
  Receive Date: 20100129
  Receipt Date: 20100120
  Transmission Date: 20100710
  Serious: Yes (Hospitalization)
  Sender: FDA-Public Use
  Company Number: US-JNJCH-2010001927

PATIENT
  Age: 64 Year
  Sex: Female
  Weight: 57.6 kg

DRUGS (2)
  1. ROLAIDS TAB [Suspect]
     Indication: DYSPEPSIA
     Dosage: TEXT:TWO TABLETS EVERY 3-4 HOURS
     Route: 048
  2. PRILOSEC [Concomitant]
     Indication: GASTROOESOPHAGEAL REFLUX DISEASE
     Dosage: TEXT:2 TABLET FOR 2-3 DAYS
     Route: 048

REACTIONS (9)
  - ABDOMINAL PAIN UPPER [None]
  - BLOOD POTASSIUM DECREASED [None]
  - DIARRHOEA [None]
  - DYSPEPSIA [None]
  - NAUSEA [None]
  - OFF LABEL USE [None]
  - OVERDOSE [None]
  - PRODUCT QUALITY ISSUE [None]
  - VOMITING [None]
